FAERS Safety Report 4703794-0 (Version None)
Quarter: 2005Q2

REPORT INFORMATION
  Report Type: 
  Country: None (occurrence: None)
  Receive Date: 20050629
  Receipt Date: 20050629
  Transmission Date: 20051028
  Serious: Yes (Life-Threatening)
  Sender: FDA-Public Use
  Company Number: None

PATIENT
  Age: 41 Year
  Sex: Male
  Weight: 82.5547 kg

DRUGS (2)
  1. LAMICTAL [Suspect]
     Indication: BIPOLAR DISORDER
     Dosage: 25 MG  ONCE PER D   ORAL
     Route: 048
     Dates: start: 20050602, end: 20050610
  2. ATIVAN [Concomitant]

REACTIONS (6)
  - ABDOMINAL DISCOMFORT [None]
  - ALANINE AMINOTRANSFERASE INCREASED [None]
  - ASPARTATE AMINOTRANSFERASE INCREASED [None]
  - LYMPH NODE PAIN [None]
  - MALAISE [None]
  - MUSCULOSKELETAL STIFFNESS [None]
